FAERS Safety Report 20525743 (Version 2)
Quarter: 2022Q1

REPORT INFORMATION
  Report Type: Report from Study
  Country: None (occurrence: BR)
  Receive Date: 20220228
  Receipt Date: 20220314
  Transmission Date: 20220423
  Serious: Yes (Life-Threatening, Other)
  Sender: FDA-Public Use
  Company Number: BR-AKCEA THERAPEUTICS, INC.-2022IS001283

PATIENT
  Age: 52 Year
  Sex: Male
  Weight: 70.182 kg

DRUGS (2)
  1. TEGSEDI [Suspect]
     Active Substance: INOTERSEN SODIUM
     Indication: Hereditary neuropathic amyloidosis
     Route: 058
     Dates: start: 201701, end: 20220211
  2. DEVICE [Suspect]
     Active Substance: DEVICE

REACTIONS (15)
  - Chest pain [Not Recovered/Not Resolved]
  - Chills [Not Recovered/Not Resolved]
  - Hyperhidrosis [Not Recovered/Not Resolved]
  - Abdominal pain [Not Recovered/Not Resolved]
  - Diarrhoea [Recovered/Resolved]
  - Gastrointestinal disorder [Not Recovered/Not Resolved]
  - Muscular weakness [Not Recovered/Not Resolved]
  - Asthenia [Not Recovered/Not Resolved]
  - Pain [Not Recovered/Not Resolved]
  - Syncope [Not Recovered/Not Resolved]
  - Neurogenic bladder [Not Recovered/Not Resolved]
  - Fear of death [Unknown]
  - Dyspnoea [Not Recovered/Not Resolved]
  - Memory impairment [Unknown]
  - Off label use [Recovered/Resolved]

NARRATIVE: CASE EVENT DATE: 20211101
